FAERS Safety Report 11074302 (Version 1)
Quarter: 2015Q2

REPORT INFORMATION
  Report Type: Report from Study
  Country: AU (occurrence: AU)
  Receive Date: 20150429
  Receipt Date: 20150429
  Transmission Date: 20150821
  Serious: Yes (Other)
  Sender: FDA-Public Use
  Company Number: AU-ABBVIE-15P-008-1382641-00

PATIENT
  Age: 72 Year
  Sex: Male

DRUGS (1)
  1. DUODOPA [Suspect]
     Active Substance: CARBIDOPA\LEVODOPA
     Indication: PRODUCT USED FOR UNKNOWN INDICATION
     Route: 065
     Dates: start: 20130318

REACTIONS (9)
  - Mobility decreased [Unknown]
  - Knee operation [Unknown]
  - Arthralgia [Unknown]
  - Stoma site pain [Unknown]
  - Stoma site erythema [Unknown]
  - Freezing phenomenon [Unknown]
  - Stoma site pain [Not Recovered/Not Resolved]
  - Musculoskeletal stiffness [Unknown]
  - Stoma site pain [Unknown]

NARRATIVE: CASE EVENT DATE: 20130522
